FAERS Safety Report 7644658-2 (Version None)
Quarter: 2011Q3

REPORT INFORMATION
  Report Type: 
  Country: None (occurrence: None)
  Receive Date: 20110729
  Receipt Date: 20110719
  Transmission Date: 20111222
  Serious: Yes (Hospitalization, Other)
  Sender: FDA-Public Use
  Company Number: US-CELGENEUS-163-21880-11040338

PATIENT
  Sex: Female

DRUGS (16)
  1. GABAPENTIN [Concomitant]
     Dosage: 600 MILLIGRAM
     Route: 048
  2. MIRALAX [Concomitant]
     Indication: CONSTIPATION
     Route: 048
  3. METOPROLOL TARTRATE [Concomitant]
     Indication: HYPERTENSION
     Route: 048
  4. DEXAMETHASONE [Concomitant]
     Dosage: 40 MILLIGRAM
     Route: 048
  5. REVLIMID [Suspect]
     Dosage: 25 MILLIGRAM
     Route: 048
     Dates: start: 20110414
  6. METHIMAZOLE [Concomitant]
     Dosage: 5 MILLIGRAM
     Route: 048
  7. COMPAZINE [Concomitant]
     Indication: VOMITING
  8. VITAMIN D [Concomitant]
     Dosage: 1000 IU (INTERNATIONAL UNIT)
     Route: 048
  9. ONDANSETRON [Concomitant]
     Indication: VOMITING
  10. OMEPRAZOLE [Concomitant]
     Dosage: 40 MILLIGRAM
     Route: 048
  11. REVLIMID [Suspect]
     Indication: MULTIPLE MYELOMA
     Dosage: 15 MILLIGRAM
     Route: 048
     Dates: start: 20090909
  12. REVLIMID [Suspect]
     Dosage: 10-25MG
     Route: 048
     Dates: start: 20110201
  13. COMPAZINE [Concomitant]
     Indication: NAUSEA
     Dosage: 10 MILLIGRAM
     Route: 048
  14. REVLIMID [Suspect]
     Dosage: 25 MILLIGRAM
     Route: 048
     Dates: start: 20090923
  15. ONDANSETRON [Concomitant]
     Indication: NAUSEA
     Dosage: 8 MILLIGRAM
     Route: 048
  16. OXYCONTIN [Concomitant]
     Indication: PAIN
     Dosage: 30 MILLIGRAM
     Route: 048

REACTIONS (4)
  - INTESTINAL OBSTRUCTION [None]
  - NEUTROPENIA [None]
  - HYPOKALAEMIA [None]
  - STAPHYLOCOCCAL BACTERAEMIA [None]
